FAERS Safety Report 9332647 (Version 1)
Quarter: 2013Q2

REPORT INFORMATION
  Report Type: Spontaneous
  Country: US (occurrence: US)
  Receive Date: 20130606
  Receipt Date: 20130606
  Transmission Date: 20140414
  Serious: Yes (Hospitalization)
  Sender: FDA-Public Use
  Company Number: US-LUNDBECK-DKLU1091281

PATIENT
  Age: 1 Year
  Sex: Male
  Weight: 123 kg

DRUGS (9)
  1. SABRIL (FOR ORAL SOLUTION) [Suspect]
     Indication: INFANTILE SPASMS
     Route: 048
     Dates: start: 20120721
  2. KEPPRA [Concomitant]
     Indication: PRODUCT USED FOR UNKNOWN INDICATION
  3. ONFI [Concomitant]
     Indication: PRODUCT USED FOR UNKNOWN INDICATION
  4. ONFI [Concomitant]
  5. ONFI [Concomitant]
  6. VIMPAT [Concomitant]
     Indication: PRODUCT USED FOR UNKNOWN INDICATION
  7. ZONISAMIDE [Concomitant]
     Indication: PRODUCT USED FOR UNKNOWN INDICATION
  8. ZONISAMIDE [Concomitant]
  9. ZONISAMIDE [Concomitant]

REACTIONS (2)
  - Bronchiolitis [Recovered/Resolved]
  - Hypoxia [Recovered/Resolved]
